FAERS Safety Report 4874763-5 (Version None)
Quarter: 2006Q1

REPORT INFORMATION
  Report Type: 
  Country: None (occurrence: None)
  Receive Date: 20060104
  Receipt Date: 20051220
  Transmission Date: 20060701
  Serious: Yes (Death, Hospitalization)
  Sender: FDA-Public Use
  Company Number: 2005171926

PATIENT
  Age: 77 Year
  Sex: Female

DRUGS (1)
  1. AZULFIDINE [Suspect]
     Indication: ILL-DEFINED DISORDER
     Dosage: ORAL
     Route: 048
     Dates: start: 20050101

REACTIONS (1)
  - TOXIC EPIDERMAL NECROLYSIS [None]
